FAERS Safety Report 4445906-2 (Version None)
Quarter: 2004Q3

REPORT INFORMATION
  Report Type: 
  Country: None (occurrence: None)
  Receive Date: 20040907
  Receipt Date: 20040824
  Transmission Date: 20050211
  Serious: Yes (Other)
  Sender: FDA-Public Use
  Company Number: 2004-BP-07339AU

PATIENT
  Sex: Female

DRUGS (4)
  1. MOBIC [Suspect]
     Dosage: PO
     Route: 048
  2. ARAVA [Suspect]
     Indication: RHEUMATOID ARTHRITIS
     Dosage: 30 MG DAILY PO
     Route: 048
     Dates: start: 20030301, end: 20030917
  3. LIPITOR [Suspect]
     Dosage: PO
     Route: 048
  4. COD-LIVER OIL (COD-LIVER OIL) (NR) [Suspect]

REACTIONS (4)
  - HEPATIC NEOPLASM [None]
  - HEPATOTOXICITY [None]
  - NEPHROPATHY TOXIC [None]
  - RENAL NEOPLASM [None]
